FAERS Safety Report 22176278 (Version 1)
Quarter: 2023Q2

REPORT INFORMATION
  Report Type: Spontaneous
  Country: US (occurrence: None)
  Receive Date: 20230405
  Receipt Date: 20230405
  Transmission Date: 20230722
  Serious: Yes (Other)
  Sender: FDA-Public Use
  Company Number: US-FARMAPROD-202212-2786

PATIENT
  Age: 89 Year
  Sex: Female
  Weight: 79.450 kg

DRUGS (9)
  1. OXERVATE [Suspect]
     Active Substance: CENEGERMIN-BKBJ
     Indication: Neurotrophic keratopathy
     Route: 047
     Dates: start: 20221215, end: 20230209
  2. OXERVATE [Suspect]
     Active Substance: CENEGERMIN-BKBJ
     Route: 047
     Dates: start: 20230320
  3. REFRESH CELLUVISC [Concomitant]
     Active Substance: CARBOXYMETHYLCELLULOSE SODIUM
     Dosage: DROPERETTE GEL
  4. EYLEA [Concomitant]
     Active Substance: AFLIBERCEPT
     Dosage: 2 MG / 0.05 ML SYRINGE
  5. METOPROLOL SUCCINATE [Concomitant]
     Active Substance: METOPROLOL SUCCINATE
  6. XARELTO [Concomitant]
     Active Substance: RIVAROXABAN
  7. METHOTREXATE [Concomitant]
     Active Substance: METHOTREXATE
  8. OCUVITE ADULT 50 PLUS [Concomitant]
  9. VITAMINS [Concomitant]
     Active Substance: VITAMINS
     Dosage: 18 MG-0.4 MG

REACTIONS (10)
  - Atrial fibrillation [Unknown]
  - Eye pain [Not Recovered/Not Resolved]
  - Eyelid pain [Not Recovered/Not Resolved]
  - Eye inflammation [Not Recovered/Not Resolved]
  - Headache [Not Recovered/Not Resolved]
  - Paranasal sinus discomfort [Not Recovered/Not Resolved]
  - Sinus congestion [Not Recovered/Not Resolved]
  - Hypersensitivity [Unknown]
  - Nasopharyngitis [Unknown]
  - Therapy partial responder [Unknown]

NARRATIVE: CASE EVENT DATE: 20230324
